FAERS Safety Report 4854193-2 (Version None)
Quarter: 2005Q4

REPORT INFORMATION
  Report Type: 
  Country: None (occurrence: None)
  Receive Date: 20051213
  Receipt Date: 20051130
  Transmission Date: 20060501
  Serious: Yes (Other)
  Sender: FDA-Public Use
  Company Number: 2005163379

PATIENT
  Age: 40 Year
  Sex: Female
  Weight: 77.1115 kg

DRUGS (8)
  1. NARDIL [Suspect]
     Indication: DEPRESSION
     Dosage: 60 MG (15 MG, 1 IN 1 D), ORAL
     Route: 048
  2. GEODON [Suspect]
     Indication: BIPOLAR DISORDER
     Dosage: 40 MG (20 MG, 2 IN 1 D), ORAL
     Route: 048
     Dates: start: 20051101, end: 20051127
  3. SEROQUEL [Suspect]
     Indication: MANIA
     Dosage: (AS NECESSARY),
     Dates: start: 20050101
  4. VALIUM [Concomitant]
  5. IBUPROFEN [Concomitant]
  6. LORTAB [Concomitant]
  7. SOMA [Concomitant]
  8. PULMICORT [Concomitant]

REACTIONS (13)
  - ANXIETY [None]
  - BIPOLAR DISORDER [None]
  - DIARRHOEA [None]
  - DRUG INTERACTION [None]
  - DYSGEUSIA [None]
  - HALLUCINATION, VISUAL [None]
  - HYPERHIDROSIS [None]
  - INSOMNIA [None]
  - MANIA [None]
  - PSYCHOTIC DISORDER [None]
  - SEDATION [None]
  - SEROTONIN SYNDROME [None]
  - TREMOR [None]
